FAERS Safety Report 9803247 (Version 2)
Quarter: 2014Q1

REPORT INFORMATION
  Report Type: Spontaneous
  Country: BR (occurrence: BR)
  Receive Date: 20140108
  Receipt Date: 20140205
  Transmission Date: 20141002
  Serious: Yes (Other)
  Sender: FDA-Public Use
  Company Number: PHHY2014BR001259

PATIENT
  Age: 87 Year
  Sex: Male

DRUGS (5)
  1. HYDERGINE [Suspect]
     Indication: ANGIOPATHY
     Dosage: 2 DF (1MG), DAILY
     Route: 048
  2. FUROSEMIDE [Concomitant]
     Indication: MICTURITION DISORDER
     Dosage: 0.5 UNK, DAILY
     Route: 048
  3. SEPURIN [Concomitant]
     Dosage: 2 DF, DAILY (IN ALTERNATE WEEKS WITH PYRIDIUM
     Route: 048
  4. PYRIDIUM [Concomitant]
     Dosage: 2 DF, DAILY (IN ALTERNATE WEEKS WITH PYRIDIUM
     Route: 048
  5. LEXAPRO [Concomitant]
     Indication: ANTIDEPRESSANT THERAPY
     Dosage: 10 GTT, DAILY
     Route: 048

REACTIONS (5)
  - Cerebrovascular accident [Recovered/Resolved with Sequelae]
  - Movement disorder [Not Recovered/Not Resolved]
  - Urinary incontinence [Not Recovered/Not Resolved]
  - Urinary tract infection [Unknown]
  - Diabetes mellitus [Unknown]
